FAERS Safety Report 13965606 (Version 5)
Quarter: 2018Q1

REPORT INFORMATION
  Report Type: Spontaneous
  Country: DE (occurrence: DE)
  Receive Date: 20170913
  Receipt Date: 20180212
  Transmission Date: 20180508
  Serious: Yes (Death, Other)
  Sender: FDA-Public Use
  Company Number: DE-PFIZER INC-2017392311

PATIENT
  Age: 76 Year
  Sex: Female
  Weight: 65 kg

DRUGS (20)
  1. NORADRENALINE [Concomitant]
     Active Substance: NOREPINEPHRINE
     Dosage: 40000 IU DAILY
  2. RAMILICH 2.5 [Concomitant]
     Dosage: 1 DF, DAILY, 1-0-0
  3. ASS 100 [Concomitant]
     Active Substance: ASPIRIN
     Dosage: 1 DF, DAILY (0-1-0)
  4. SIMVA 20 [Concomitant]
     Dosage: 1 DF, 1X/DAY (0-0-1)
  5. TRANEXAMIC ACID. [Suspect]
     Active Substance: TRANEXAMIC ACID
     Dosage: 10 ML, UNK
     Dates: start: 20170728, end: 20170728
  6. HEPARIN-RATIOPHARM [Suspect]
     Active Substance: HEPARIN SODIUM
     Dosage: UNK
  7. NORADRENALINE [Concomitant]
     Active Substance: NOREPINEPHRINE
     Dosage: 0.05 UG/KG/MIN BEFORE THE HEPARIN ADMINISTRATION
  8. SPIRONOLACTON 50 [Concomitant]
     Dosage: 1 DF, DAILY (0.5-0-0)
  9. CLOPIDOGREL 75 [Concomitant]
     Dosage: UNK
     Dates: start: 20170727, end: 20170727
  10. LANTUS [Concomitant]
     Active Substance: INSULIN GLARGINE
     Dosage: UNK
  11. TONUM 10 [Concomitant]
     Dosage: UNK
  12. NOREPINEPHRINE. [Concomitant]
     Active Substance: NOREPINEPHRINE
     Dosage: UNK UNK, DAILY
     Dates: start: 20170728
  13. HEPARIN-RATIOPHARM [Suspect]
     Active Substance: HEPARIN SODIUM
     Dosage: 40000 IU, UNK
     Route: 042
     Dates: start: 20170728, end: 20170728
  14. METOPROLOL 95 [Concomitant]
     Dosage: 2 DF, DAILY 1-0-0.5
  15. HEPARIN-RATIOPHARM [Suspect]
     Active Substance: HEPARIN SODIUM
     Dosage: UNK
  16. NORADRENALINE [Concomitant]
     Active Substance: NOREPINEPHRINE
     Dosage: 0.2 UG/KG/MIN POST-OP
  17. METFORMIN 1000 [Concomitant]
     Active Substance: METFORMIN HYDROCHLORIDE
     Dosage: 2 DF, DAILY1-0-1
  18. NEUROPLANT [Concomitant]
     Dosage: 1 DF, DAILY 0-0-1
  19. HEPARIN-RATIOPHARM [Suspect]
     Active Substance: HEPARIN SODIUM
     Dosage: UNK
  20. NORADRENALINE [Concomitant]
     Active Substance: NOREPINEPHRINE
     Dosage: 0.15 VIA HEART-LUNG-MACHINE

REACTIONS (4)
  - Vasodilatation [Unknown]
  - Haemoglobin increased [Unknown]
  - Multiple organ dysfunction syndrome [Fatal]
  - Drug ineffective [Unknown]

NARRATIVE: CASE EVENT DATE: 20170728
